FAERS Safety Report 8747136 (Version 2)
Quarter: 2012Q4

REPORT INFORMATION
  Report Type: 
  Country: US (occurrence: US)
  Receive Date: 20120827
  Receipt Date: 20121115
  Transmission Date: 20130627
  Serious: No
  Sender: FDA-Public Use
  Company Number: US-INCYTE CORPORATION-2012IN001583

PATIENT
  Sex: Female
  Weight: 50 kg

DRUGS (2)
  1. JAKAFI [Suspect]
     Indication: MYELOFIBROSIS
     Dosage: 10 mg, bid
     Route: 048
     Dates: start: 20120221, end: 20120405
  2. SYNTHROID [Concomitant]
     Dosage: 50 mcg, qd

REACTIONS (1)
  - Drug ineffective [None]
